FAERS Safety Report 16407238 (Version 5)
Quarter: 2019Q3

REPORT INFORMATION
  Report Type: Report from Study
  Country: US (occurrence: US)
  Receive Date: 20190608
  Receipt Date: 20190904
  Transmission Date: 20191004
  Serious: Yes (Hospitalization, Other)
  Sender: FDA-Public Use
  Company Number: US-UCBSA-2017028725

PATIENT
  Age: 55 Year
  Sex: Male

DRUGS (3)
  1. LACOSAMIDE. [Suspect]
     Active Substance: LACOSAMIDE
     Indication: EPILEPSY
     Dosage: 200 MILLIGRAM, 3X/DAY (TID)
  2. LACOSAMIDE. [Suspect]
     Active Substance: LACOSAMIDE
     Dosage: 200 MILLIGRAM, 3X/DAY (TID)
  3. LACOSAMIDE. [Suspect]
     Active Substance: LACOSAMIDE
     Indication: SEIZURE
     Dosage: 200 MILLIGRAM, 2X/DAY (BID)

REACTIONS (6)
  - Seizure [Recovered/Resolved]
  - Off label use [Unknown]
  - Cerebrovascular accident [Unknown]
  - Therapeutic response decreased [Unknown]
  - Overdose [Unknown]
  - Road traffic accident [Unknown]

NARRATIVE: CASE EVENT DATE: 201605
